FAERS Safety Report 11147385 (Version 2)
Quarter: 2015Q2

REPORT INFORMATION
  Report Type: Spontaneous
  Country: BR (occurrence: BR)
  Receive Date: 20150528
  Receipt Date: 20150611
  Transmission Date: 20150821
  Serious: Yes (Death, Hospitalization)
  Sender: FDA-Public Use
  Company Number: BR-LUNDBECK-DKLU1112203

PATIENT
  Sex: Female

DRUGS (1)
  1. FRISIUM [Suspect]
     Active Substance: CLOBAZAM
     Indication: PRODUCT USED FOR UNKNOWN INDICATION
     Route: 065

REACTIONS (4)
  - Epilepsy [Unknown]
  - Haemodialysis complication [None]
  - Death [Fatal]
  - Drug ineffective [None]

NARRATIVE: CASE EVENT DATE: 20150424
